FAERS Safety Report 6625644-8 (Version None)
Quarter: 2010Q1

REPORT INFORMATION
  Report Type: 
  Country: None (occurrence: None)
  Receive Date: 20100310
  Receipt Date: 20100302
  Transmission Date: 20100710
  Serious: Yes (Other)
  Sender: FDA-Public Use
  Company Number: JP-JNJFOC-20100301564

PATIENT
  Age: 18 Year
  Sex: Female

DRUGS (8)
  1. FENTANYL [Suspect]
     Indication: PAIN MANAGEMENT
     Route: 065
  2. FENTANYL [Suspect]
     Indication: ANAESTHESIA
     Route: 065
  3. HALOPERIDOL [Suspect]
     Indication: PAIN MANAGEMENT
     Route: 065
  4. HALOPERIDOL [Suspect]
     Indication: ANAESTHESIA
     Route: 065
  5. DROPERIDOL [Suspect]
     Indication: PAIN MANAGEMENT
     Route: 065
  6. DROPERIDOL [Suspect]
     Indication: ANAESTHESIA
     Route: 065
  7. MORPHINE [Suspect]
     Indication: PAIN MANAGEMENT
     Route: 065
  8. MORPHINE [Suspect]
     Indication: ANAESTHESIA
     Route: 065

REACTIONS (8)
  - AFFECT LABILITY [None]
  - CATATONIA [None]
  - DYSPNOEA [None]
  - HYPERHIDROSIS [None]
  - MUSCLE RIGIDITY [None]
  - MYOCLONUS [None]
  - PYREXIA [None]
  - TACHYCARDIA [None]
